FAERS Safety Report 5158907-6 (Version None)
Quarter: 2006Q4

REPORT INFORMATION
  Report Type: 
  Country: None (occurrence: None)
  Receive Date: 20061115
  Receipt Date: 20061102
  Transmission Date: 20070319
  Serious: Yes (Other)
  Sender: FDA-Public Use
  Company Number: CHNY2006FR02861

PATIENT
  Age: 72 Year
  Sex: Female

DRUGS (3)
  1. SCOPODERM TTS (NCH) (HYOSCINE HYDROBROMIDE)TRANS-THERAPEUTIC-SYSTEM) [Suspect]
     Indication: MOTION SICKNESS
     Dosage: 1 DF, QD, TRANSDERMAL
     Route: 062
     Dates: start: 20061007, end: 20061012
  2. ESCITALOPRAM OXALATE [Concomitant]
  3. XANAX [Concomitant]

REACTIONS (8)
  - AMNESIA [None]
  - CONFUSIONAL STATE [None]
  - FATIGUE [None]
  - HEADACHE [None]
  - INCORRECT DRUG ADMINISTRATION RATE [None]
  - MIGRAINE [None]
  - OVERDOSE [None]
  - VOMITING [None]
